FAERS Safety Report 7335285-5 (Version None)
Quarter: 2011Q1

REPORT INFORMATION
  Report Type: 
  Country: None (occurrence: None)
  Receive Date: 20110307
  Receipt Date: 20110228
  Transmission Date: 20110831
  Serious: No
  Sender: FDA-Public Use
  Company Number: US-PFIZER INC-2010180730

PATIENT
  Sex: Male
  Weight: 77 kg

DRUGS (5)
  1. LIPITOR [Suspect]
     Indication: BLOOD CHOLESTEROL INCREASED
     Dosage: 10 MG, DAILY
     Route: 048
     Dates: start: 20080101
  2. ASPIRIN [Concomitant]
     Dosage: 325 MG, DAILY
  3. BENADRYL [Concomitant]
     Dosage: 90 MG, UNK
  4. ASPIRIN [Concomitant]
     Dosage: 81 MG, UNK
  5. MULTIVIT [Concomitant]
     Dosage: UNK

REACTIONS (1)
  - PROSTATIC SPECIFIC ANTIGEN INCREASED [None]
